FAERS Safety Report 11620682 (Version 2)
Quarter: 2017Q3

REPORT INFORMATION
  Report Type: Spontaneous
  Country: IT (occurrence: JP)
  Receive Date: 20151012
  Receipt Date: 20170711
  Transmission Date: 20171127
  Serious: Yes (Hospitalization)
  Sender: FDA-Public Use
  Company Number: IT-SIGMA-TAU US-2015STPI000635

PATIENT
  Age: 29 Year
  Sex: Female

DRUGS (7)
  1. CARNITOR [Suspect]
     Active Substance: LEVOCARNITINE
     Indication: CARNITINE DEFICIENCY
     Dosage: 2000 MG, X2
     Route: 042
     Dates: start: 20140905, end: 20140907
  2. BIFIDOBACTERIUM ANIMALIS [Concomitant]
     Indication: GASTROENTERITIS
     Dosage: UNK
     Dates: start: 20140901
  3. DOMPERIDONE [Concomitant]
     Active Substance: DOMPERIDONE
     Indication: GASTROENTERITIS
  4. CARNITOR [Suspect]
     Active Substance: LEVOCARNITINE
     Indication: HYPERAMMONAEMIA
  5. AMOXICILLIN. [Concomitant]
     Active Substance: AMOXICILLIN
     Indication: GASTROENTERITIS
     Dosage: UNK
     Dates: start: 20140901
  6. ACETAMINOPHEN. [Concomitant]
     Active Substance: ACETAMINOPHEN
     Indication: GASTROENTERITIS
     Dosage: UNK
     Dates: start: 20140901
  7. CARNITOR [Suspect]
     Active Substance: LEVOCARNITINE
     Indication: ACUTE HEPATIC FAILURE
     Dosage: 6000 MG, UNK
     Route: 042
     Dates: start: 20140906, end: 20140906

REACTIONS (6)
  - Gastroenteritis [Recovered/Resolved]
  - Wound infection [Recovered/Resolved]
  - Hepatitis B [Recovering/Resolving]
  - Hepatic encephalopathy [None]
  - Pleural effusion [Recovered/Resolved]
  - Amylase increased [Unknown]

NARRATIVE: CASE EVENT DATE: 20140901
